FAERS Safety Report 22950200 (Version 2)
Quarter: 2023Q4

REPORT INFORMATION
  Report Type: Spontaneous
  Country: JP (occurrence: JP)
  Receive Date: 20230915
  Receipt Date: 20231002
  Transmission Date: 20240110
  Serious: Yes (Other)
  Sender: FDA-Public Use
  Company Number: None

PATIENT

DRUGS (2)
  1. FLUTICASONE FUROATE\VILANTEROL TRIFENATATE [Suspect]
     Active Substance: FLUTICASONE FUROATE\VILANTEROL TRIFENATATE
     Indication: Asthma
     Dosage: 200 ?G
  2. PREDONINE [Suspect]
     Active Substance: PREDNISOLONE
     Dosage: UNK

REACTIONS (3)
  - Deafness [Unknown]
  - Otitis media [Unknown]
  - Cushingoid [Unknown]
